FAERS Safety Report 6391644 (Version 3)
Quarter: 2013Q2

REPORT INFORMATION
  Report Type: Spontaneous
  Country: US (occurrence: US)
  Receive Date: 20070820
  Receipt Date: 20130419
  Transmission Date: 20140414
  Serious: Yes (Hospitalization, Other)
  Sender: FDA-Public Use
  Company Number: 2007BI016906

PATIENT
  Age: 53 Year
  Sex: Female

DRUGS (2)
  1. AVONEX [Suspect]
     Indication: MULTIPLE SCLEROSIS
     Route: 030
     Dates: start: 20030405
  2. AVONEX [Suspect]
     Indication: MULTIPLE SCLEROSIS
     Route: 030
     Dates: start: 20120424

REACTIONS (8)
  - Myocardial infarction [Recovered/Resolved]
  - Lung disorder [Unknown]
  - Basal cell carcinoma [Unknown]
  - Neoplasm malignant [Not Recovered/Not Resolved]
  - Intervertebral disc protrusion [Unknown]
  - Fall [Recovered/Resolved]
  - Amnesia [Unknown]
  - Fatigue [Unknown]
